FAERS Safety Report 10056514 (Version 2)
Quarter: 2014Q2

REPORT INFORMATION
  Report Type: Report from Study
  Country: BR (occurrence: BR)
  Receive Date: 20140403
  Receipt Date: 20140609
  Transmission Date: 20141212
  Serious: Yes (Other)
  Sender: FDA-Public Use
  Company Number: PHHY2014BR039599

PATIENT
  Sex: Male
  Weight: 87 kg

DRUGS (4)
  1. DIOVAN HCT [Suspect]
     Indication: HYPERTENSION
     Dosage: 0.5 DF, IN THE MORNING (VALS 160 MG AND 12.5 HCTZ)
     Route: 048
  2. DIOVAN HCT [Suspect]
     Dosage: 1 DF, BID (VALS 160 MG AND 12.5 MG HCTZ) 1 TABLET IN THE MORNING AND 1 TABLET IN THE NIGHT
  3. GLUCOFORMIN [Concomitant]
     Indication: DIABETES MELLITUS
     Dosage: 2 DF, A DAY
  4. ALENIA                             /01538101/ [Concomitant]
     Indication: ASTHMA
     Dosage: 2 DF, A DAY
     Route: 055

REACTIONS (5)
  - Neoplasm prostate [Recovered/Resolved]
  - Nervousness [Recovered/Resolved]
  - Asthenia [Recovered/Resolved]
  - Blood pressure increased [Recovered/Resolved]
  - Wrong technique in drug usage process [Recovered/Resolved]
